FAERS Safety Report 9924578 (Version 3)
Quarter: 2014Q2

REPORT INFORMATION
  Report Type: Spontaneous
  Country: US (occurrence: US)
  Receive Date: 20140226
  Receipt Date: 20140408
  Transmission Date: 20141212
  Serious: No
  Sender: FDA-Public Use
  Company Number: US-PFIZER INC-2014051967

PATIENT
  Age: 45 Year
  Sex: Female
  Weight: 97.51 kg

DRUGS (5)
  1. LYRICA [Suspect]
     Indication: INTERVERTEBRAL DISC DISORDER
     Dosage: 150 MG, 1X/DAY
     Route: 048
     Dates: start: 201401
  2. LYRICA [Suspect]
     Indication: HYPOAESTHESIA
  3. LYRICA [Suspect]
     Indication: PAIN IN EXTREMITY
  4. LYRICA [Suspect]
     Indication: BACK DISORDER
  5. LYRICA [Suspect]
     Indication: PAIN

REACTIONS (1)
  - Drug ineffective [Unknown]
